FAERS Safety Report 4342452-1 (Version None)
Quarter: 2004Q2

REPORT INFORMATION
  Report Type: 
  Country: None (occurrence: None)
  Receive Date: 20040416
  Receipt Date: 20040405
  Transmission Date: 20050107
  Serious: Yes (Other)
  Sender: FDA-Public Use
  Company Number: 2004207897US

PATIENT
  Sex: Female
  Weight: 72.6 kg

DRUGS (3)
  1. ROGAINE [Suspect]
     Indication: FEMALE PATTERN BALDNESS
     Dosage: 1 ML BID TOPICAL
     Route: 061
     Dates: start: 19960101, end: 19980101
  2. SYNTHROID [Concomitant]
  3. GENERIC DAYPRO [Concomitant]

REACTIONS (3)
  - ALOPECIA [None]
  - HAIR COLOUR CHANGES [None]
  - OVARIAN CANCER [None]
